FAERS Safety Report 9206807 (Version 2)
Quarter: 2013Q2

REPORT INFORMATION
  Report Type: Spontaneous
  Country: US (occurrence: US)
  Receive Date: 20130403
  Receipt Date: 20130418
  Transmission Date: 20140414
  Serious: No
  Sender: FDA-Public Use
  Company Number: US-009507513-1304USA001365

PATIENT
  Age: 90 Year
  Sex: Male
  Weight: 82.54 kg

DRUGS (5)
  1. MIRALAX [Suspect]
     Indication: CONSTIPATION
     Dosage: 17 G, QOD
     Route: 048
     Dates: start: 2011
  2. SIMVASTATIN [Concomitant]
     Indication: BLOOD CHOLESTEROL INCREASED
     Dosage: UNK, UNKNOWN
  3. DIGOXIN [Concomitant]
     Indication: ATRIAL FIBRILLATION
     Dosage: UNK, UNKNOWN
  4. LEVOTHYROXINE SODIUM [Concomitant]
     Indication: THYROXINE DECREASED
     Dosage: UNK, UNKNOWN
  5. WARFARIN [Concomitant]
     Indication: PROPHYLAXIS
     Dosage: UNK, UNKNOWN

REACTIONS (4)
  - Faeces hard [Not Recovered/Not Resolved]
  - Drug ineffective [Unknown]
  - Incorrect drug administration duration [Unknown]
  - Inappropriate schedule of drug administration [Unknown]
